FAERS Safety Report 7497182-4 (Version None)
Quarter: 2011Q2

REPORT INFORMATION
  Report Type: 
  Country: None (occurrence: None)
  Receive Date: 20110523
  Receipt Date: 20110519
  Transmission Date: 20111010
  Serious: Yes (Death, Hospitalization)
  Sender: FDA-Public Use
  Company Number: SE-ASTRAZENECA-2011SE30127

PATIENT
  Age: 38 Year
  Sex: Male

DRUGS (1)
  1. QUETIAPINE [Suspect]
     Route: 048

REACTIONS (6)
  - SEDATION [None]
  - OVERDOSE [None]
  - REFUSAL OF TREATMENT BY PATIENT [None]
  - CIRCULATORY COLLAPSE [None]
  - CONVULSION [None]
  - TACHYCARDIA [None]
